FAERS Safety Report 6896515-7 (Version None)
Quarter: 2010Q3

REPORT INFORMATION
  Report Type: 
  Country: None (occurrence: None)
  Receive Date: 20100802
  Receipt Date: 20090311
  Transmission Date: 20110219
  Serious: Yes (Other)
  Sender: FDA-Public Use
  Company Number: US-PFIZER INC-2009163646

PATIENT
  Sex: Female
  Weight: 58.957 kg

DRUGS (3)
  1. NEURONTIN [Suspect]
     Indication: NEURALGIA
     Dosage: 100 MG, 1X/DAY
     Route: 048
  2. NEURONTIN [Suspect]
     Indication: TRIGEMINAL NEURALGIA
  3. ACETYLSALICYLIC ACID [Concomitant]
     Indication: ESSENTIAL THROMBOCYTHAEMIA
     Dosage: 325 MG, 1X/DAY

REACTIONS (6)
  - CHEST PAIN [None]
  - EAR DISORDER [None]
  - HEPATITIS [None]
  - PLATELET COUNT INCREASED [None]
  - SEDATION [None]
  - VERTIGO [None]
